FAERS Safety Report 19304708 (Version 3)
Quarter: 2021Q2

REPORT INFORMATION
  Report Type: Spontaneous
  Country: GB (occurrence: GB)
  Receive Date: 20210526
  Receipt Date: 20210621
  Transmission Date: 20210717
  Serious: Yes (Hospitalization, Other)
  Sender: FDA-Public Use
  Company Number: GB-SUN PHARMACEUTICAL INDUSTRIES LTD-2021RR-298177

PATIENT
  Age: 35 Year
  Sex: Male

DRUGS (4)
  1. CETIRIZINE HYDROCHLORIDE. [Suspect]
     Active Substance: CETIRIZINE HYDROCHLORIDE
     Indication: MILIARIA
     Dosage: 1 DOSAGE FORM, ONCE DAILY (QD), IN THE MORNING
     Route: 048
     Dates: start: 20210501, end: 20210501
  2. PIRITON [Suspect]
     Active Substance: CHLORPHENIRAMINE MALEATE
     Indication: MILIARIA
  3. LORATADINE. [Suspect]
     Active Substance: LORATADINE
     Indication: MILIARIA
     Dosage: 1 DOSAGE FORM, UNK
     Route: 048
  4. PIRITON [Suspect]
     Active Substance: CHLORPHENIRAMINE MALEATE
     Indication: MILIARIA
     Dosage: 10 MILLILITER, QID
     Route: 048
     Dates: start: 20210501, end: 20210504

REACTIONS (5)
  - Heart rate irregular [Recovering/Resolving]
  - Fatigue [Recovering/Resolving]
  - Seizure [Recovering/Resolving]
  - Swelling face [Recovered/Resolved with Sequelae]
  - Dry mouth [Recovered/Resolved]

NARRATIVE: CASE EVENT DATE: 20210505
